FAERS Safety Report 21268678 (Version 1)
Quarter: 2022Q3

REPORT INFORMATION
  Report Type: Spontaneous
  Country: US (occurrence: US)
  Receive Date: 20220830
  Receipt Date: 20220830
  Transmission Date: 20221027
  Serious: No
  Sender: FDA-Public Use
  Company Number: US-BRISTOL-MYERS SQUIBB COMPANY-2022-088416

PATIENT
  Age: 68 Year
  Sex: Male

DRUGS (3)
  1. HYDROXYUREA [Suspect]
     Active Substance: HYDROXYUREA
     Indication: Thrombosis
     Route: 065
  2. HYDROXYUREA [Suspect]
     Active Substance: HYDROXYUREA
     Route: 065
  3. HYDROXYUREA [Suspect]
     Active Substance: HYDROXYUREA
     Dosage: 1500-MG DOSE IN THE MORNING AND A 1000-MG DOSE IN THE EVENING.
     Route: 065

REACTIONS (2)
  - Mouth ulceration [Unknown]
  - Intentional product use issue [Unknown]
